FAERS Safety Report 14841552 (Version 2)
Quarter: 2018Q3

REPORT INFORMATION
  Report Type: Spontaneous
  Country: US (occurrence: US)
  Receive Date: 20180503
  Receipt Date: 20180726
  Transmission Date: 20181010
  Serious: No
  Sender: FDA-Public Use
  Company Number: US-BAYER-2018-080719

PATIENT
  Age: 27 Year
  Sex: Female
  Weight: 65.85 kg

DRUGS (10)
  1. MIRENA [Suspect]
     Active Substance: LEVONORGESTREL
     Indication: CONTRACEPTION
     Dosage: 20 MCG/24HR, CONT
     Route: 015
     Dates: start: 20180214, end: 20180214
  2. MIRENA [Suspect]
     Active Substance: LEVONORGESTREL
     Indication: CONTRACEPTION
     Dosage: 20 MCG/24HR, CONT
     Route: 015
     Dates: start: 20180214
  3. BETADINE [Concomitant]
     Active Substance: POVIDONE-IODINE
     Dosage: UNK
     Dates: start: 20180214
  4. VITAMIN D [Concomitant]
     Active Substance: CHOLECALCIFEROL
  5. FIORINAL CODEINA [Concomitant]
  6. ATIVAN [Concomitant]
     Active Substance: LORAZEPAM
  7. ARMOUR THYROID [Concomitant]
     Active Substance: THYROID, PORCINE
  8. LIDOCAINE. [Concomitant]
     Active Substance: LIDOCAINE
     Dosage: UNK
     Dates: start: 20180214
  9. PRENATAL VITAMINS [Concomitant]
     Active Substance: VITAMINS
  10. IRON [IRON] [Concomitant]
     Active Substance: IRON

REACTIONS (3)
  - Device deployment issue [None]
  - Vaginal haemorrhage [None]
  - Procedural pain [None]

NARRATIVE: CASE EVENT DATE: 20180214
